FAERS Safety Report 18559196 (Version 1)
Quarter: 2020Q4

REPORT INFORMATION
  Report Type: Spontaneous
  Country: US (occurrence: US)
  Receive Date: 20201127
  Receipt Date: 20201127
  Transmission Date: 20210114
  Serious: Yes (Other)
  Sender: FDA-Public Use
  Company Number: None

PATIENT
  Age: 70 Year
  Sex: Female
  Weight: 58.5 kg

DRUGS (24)
  1. AMOXICILLIN LIQUID [Concomitant]
     Active Substance: AMOXICILLIN
  2. LUTEIN [Concomitant]
     Active Substance: LUTEIN
  3. PROPAFENONE. [Concomitant]
     Active Substance: PROPAFENONE
  4. SUCRAFATE [Concomitant]
     Active Substance: SUCRALFATE
  5. IP6-INOSOTIL [Concomitant]
  6. LOSARTAN. [Concomitant]
     Active Substance: LOSARTAN
  7. D3 GUMMIES [Concomitant]
  8. GABAPENTIN. [Concomitant]
     Active Substance: GABAPENTIN
  9. VITAMIN B12 GUMMIES [Concomitant]
  10. ZEAXANTHIN [Concomitant]
     Active Substance: ZEAXANTHIN
  11. DILTIAZEM. [Concomitant]
     Active Substance: DILTIAZEM
  12. CITRICAL CALCIUM [Concomitant]
  13. FLAX OIL [Concomitant]
  14. SALINE NASAL SPRAY [Concomitant]
     Active Substance: SODIUM CHLORIDE
  15. IPRATROPIUM BROMIDE NASAL SPRAY [Suspect]
     Active Substance: IPRATROPIUM BROMIDE
     Indication: RHINITIS
     Route: 055
     Dates: start: 20201106, end: 20201126
  16. METFORMIN [Concomitant]
     Active Substance: METFORMIN HYDROCHLORIDE
  17. MCOPHENOLATE MOFETIL [Concomitant]
  18. PACEMAKER [Concomitant]
     Active Substance: DEVICE
  19. ZINC. [Concomitant]
     Active Substance: ZINC
  20. HYURALONIC ACID [Concomitant]
  21. GAVISCON [Concomitant]
     Active Substance: ALUMINUM HYDROXIDE\MAGNESIUM CARBONATE
  22. PRAVASTATIN. [Concomitant]
     Active Substance: PRAVASTATIN
  23. MAGNESIUM [Concomitant]
     Active Substance: MAGNESIUM
  24. ROGAINE [Concomitant]
     Active Substance: MINOXIDIL

REACTIONS (5)
  - Lip pain [None]
  - Hypoaesthesia oral [None]
  - Lip erythema [None]
  - Lip swelling [None]
  - Paraesthesia oral [None]

NARRATIVE: CASE EVENT DATE: 20201126
